FAERS Safety Report 9060103 (Version 1)
Quarter: 2013Q1

REPORT INFORMATION
  Report Type: Spontaneous
  Country: US (occurrence: US)
  Receive Date: 20130212
  Receipt Date: 20130212
  Transmission Date: 20140127
  Serious: Yes (Other)
  Sender: FDA-Public Use
  Company Number: US-BAYER-2013-017209

PATIENT
  Age: 25 Year
  Sex: Female

DRUGS (5)
  1. YASMIN [Suspect]
  2. LEXAPRO [Concomitant]
     Dosage: UNK
     Dates: start: 20040910
  3. RISPERIDONE [Concomitant]
     Dosage: UNK
     Dates: start: 20040910
  4. NEURONTIN [Concomitant]
     Dosage: UNK
     Dates: start: 20040910
  5. PROVERA [Concomitant]

REACTIONS (1)
  - Deep vein thrombosis [None]
